FAERS Safety Report 7527489-3 (Version None)
Quarter: 2011Q2

REPORT INFORMATION
  Report Type: 
  Country: None (occurrence: None)
  Receive Date: 20110607
  Receipt Date: 20110525
  Transmission Date: 20111010
  Serious: Yes (Hospitalization)
  Sender: FDA-Public Use
  Company Number: FR-JNJFOC-20110404596

PATIENT
  Age: 77 Year
  Sex: Male

DRUGS (12)
  1. IMOVANE [Concomitant]
     Route: 065
  2. NIZORAL [Suspect]
     Indication: CUSHING'S SYNDROME
     Route: 048
  3. XANAX [Concomitant]
     Route: 065
  4. CRESTOR [Concomitant]
     Route: 065
  5. BISOPROLOL FUMARATE [Concomitant]
     Route: 065
  6. POTASSIUM CHLORIDE [Concomitant]
     Route: 065
  7. ASPIRIN [Concomitant]
     Route: 065
  8. LANTUS [Concomitant]
     Route: 065
  9. EZETIMIBE [Concomitant]
     Route: 065
  10. NIZORAL [Suspect]
     Route: 048
     Dates: start: 20110402
  11. NEXIUM [Concomitant]
     Route: 065
  12. MAGNE- B6 [Concomitant]
     Route: 065

REACTIONS (2)
  - OVERDOSE [None]
  - DRUG INEFFECTIVE FOR UNAPPROVED INDICATION [None]
